FAERS Safety Report 13464002 (Version 1)
Quarter: 2017Q2

REPORT INFORMATION
  Report Type: Spontaneous
  Country: US (occurrence: US)
  Receive Date: 20170420
  Receipt Date: 20170420
  Transmission Date: 20170830
  Serious: Yes (Hospitalization, Other)
  Sender: FDA-Public Use
  Company Number: US-ROCHE-649017

PATIENT
  Age: 18 Year
  Sex: Male
  Weight: 81.6 kg

DRUGS (3)
  1. ACCUTANE [Suspect]
     Active Substance: ISOTRETINOIN
     Route: 048
     Dates: start: 19970110, end: 199705
  2. ACCUTANE [Suspect]
     Active Substance: ISOTRETINOIN
     Indication: ACNE
     Route: 048
     Dates: start: 19891214, end: 199001
  3. ACCUTANE [Suspect]
     Active Substance: ISOTRETINOIN
     Route: 048
     Dates: start: 199001, end: 199005

REACTIONS (8)
  - Depression [Unknown]
  - Pseudomembranous colitis [Unknown]
  - Dry skin [Unknown]
  - Inflammatory bowel disease [Unknown]
  - Colitis ulcerative [Not Recovered/Not Resolved]
  - Haematochezia [Recovering/Resolving]
  - Headache [Recovered/Resolved]
  - Chapped lips [Unknown]

NARRATIVE: CASE EVENT DATE: 199001
